FAERS Safety Report 8791597 (Version 1)
Quarter: 2012Q4

REPORT INFORMATION
  Report Type: 
  Country: JP (occurrence: JP)
  Receive Date: 20120918
  Receipt Date: 20120918
  Transmission Date: 20130627
  Serious: Yes (Other)
  Sender: FDA-Public Use
  Company Number: PHHY2012JP079989

PATIENT
  Age: 56 Year
  Sex: Male

DRUGS (5)
  1. ISONIAZID [Suspect]
     Indication: ANTIBIOTIC PROPHYLAXIS
     Dosage: 300 mg per day
  2. ISONIAZID [Suspect]
     Dosage: 25 mg per day for 5 days
  3. ISONIAZID [Suspect]
     Dosage: 50 mg per day for 3 days
  4. ISONIAZID [Suspect]
     Dosage: 100 mg per day for 3 days
  5. ISONIAZID [Suspect]
     Dosage: 200 mg per day for 5 days

REACTIONS (2)
  - Interstitial lung disease [Recovered/Resolved]
  - Hepatic function abnormal [Recovered/Resolved]
